FAERS Safety Report 23068696 (Version 1)
Quarter: 2023Q4

REPORT INFORMATION
  Report Type: Spontaneous
  Country: US (occurrence: None)
  Receive Date: 20231014
  Receipt Date: 20231014
  Transmission Date: 20240110
  Serious: No
  Sender: FDA-Public Use
  Company Number: None

PATIENT
  Age: 43 Year
  Sex: Female
  Weight: 67.5 kg

DRUGS (14)
  1. LUBIPROSTONE [Suspect]
     Active Substance: LUBIPROSTONE
     Indication: Constipation
     Dosage: OTHER QUANTITY : 1 CAPSULE(S);?FREQUENCY : TWICE A DAY;?
     Route: 048
     Dates: start: 20230814, end: 20231014
  2. AZATHIOPRINE [Concomitant]
     Active Substance: AZATHIOPRINE
  3. ALLOPURINOL [Concomitant]
     Active Substance: ALLOPURINOL
  4. PANTOPRAZOLE [Concomitant]
     Active Substance: PANTOPRAZOLE
  5. GABAPENTIN [Concomitant]
     Active Substance: GABAPENTIN
  6. MOTEGRITY [Concomitant]
     Active Substance: PRUCALOPRIDE SUCCINATE
  7. JATENZO [Concomitant]
     Active Substance: TESTOSTERONE UNDECANOATE
  8. BUPROPION [Concomitant]
     Active Substance: BUPROPION
  9. ESCITALOPRAM [Concomitant]
     Active Substance: ESCITALOPRAM OXALATE
  10. ENTYVIO [Concomitant]
     Active Substance: VEDOLIZUMAB
  11. SANCUSO [Concomitant]
     Active Substance: GRANISETRON
  12. VITIMIN D [Concomitant]
  13. VITAMINS [Concomitant]
     Active Substance: VITAMINS
  14. MELATONIN [Concomitant]
     Active Substance: MELATONIN

REACTIONS (1)
  - Anal incontinence [None]

NARRATIVE: CASE EVENT DATE: 20231014
